FAERS Safety Report 5084284-5 (Version None)
Quarter: 2006Q3

REPORT INFORMATION
  Report Type: 
  Country: None (occurrence: None)
  Receive Date: 20060816
  Receipt Date: 20060807
  Transmission Date: 20061208
  Serious: Yes (Other)
  Sender: FDA-Public Use
  Company Number: 2006096568

PATIENT
  Sex: Male

DRUGS (1)
  1. UNISOM [Suspect]
     Dosage: 6 TABLETS  (FREQUENCY UNSPECIFIED) ORAL
     Route: 048

REACTIONS (2)
  - INCORRECT DOSE ADMINISTERED [None]
  - MALAISE [None]
